FAERS Safety Report 8443599-0 (Version None)
Quarter: 2012Q2

REPORT INFORMATION
  Report Type: 
  Country: None (occurrence: None)
  Receive Date: 20120618
  Receipt Date: 20120611
  Transmission Date: 20120825
  Serious: No
  Sender: FDA-Public Use
  Company Number: US-PFIZER INC-2012141140

PATIENT
  Sex: Female

DRUGS (4)
  1. OXYCONTIN [Interacting]
     Dosage: 20 MG, 2X/DAY
  2. LYRICA [Suspect]
     Dosage: 75 MG, DAILY (ONE AT BEDTIME)
     Route: 048
     Dates: start: 20120202
  3. OXYCONTIN [Interacting]
     Dosage: 20 MG, 3X/DAY
     Dates: end: 20120206
  4. LYRICA [Interacting]
     Dosage: 75 MG, 2X/DAY
     Route: 048

REACTIONS (4)
  - WITHDRAWAL SYNDROME [None]
  - AGITATION [None]
  - DRUG INTERACTION [None]
  - ANXIETY [None]
